FAERS Safety Report 9554348 (Version 1)
Quarter: 2013Q3

REPORT INFORMATION
  Report Type: Spontaneous
  Country: US (occurrence: None)
  Receive Date: 20130805
  Receipt Date: 20130805
  Transmission Date: 20140515
  Serious: Yes (Other)
  Sender: FDA-Public Use
  Company Number: 1306USA000939

PATIENT
  Sex: Male

DRUGS (2)
  1. DEXAMETHASONE [Suspect]
     Route: 048
  2. REVLIMID (LENALIDOMIDE) [Suspect]
     Indication: MYELODYSPLASTIC SYNDROME
     Dosage: 10 MG DAILY FOR 7 DAYS WITH 7 DAYS OFF
     Route: 048
     Dates: start: 20120702

REACTIONS (2)
  - Fluid retention [None]
  - Platelet count decreased [None]
